FAERS Safety Report 7610902-0 (Version None)
Quarter: 2011Q3

REPORT INFORMATION
  Report Type: 
  Country: None (occurrence: None)
  Receive Date: 20110715
  Receipt Date: 20110707
  Transmission Date: 20111222
  Serious: Yes (Other)
  Sender: FDA-Public Use
  Company Number: US-BRISTOL-MYERS SQUIBB COMPANY-15785397

PATIENT
  Age: 74 Year
  Sex: Female

DRUGS (28)
  1. HYDREA [Suspect]
     Indication: POLYCYTHAEMIA VERA
     Dosage: ALTERNATING WITH 1000MG
     Dates: start: 19990103
  2. PROVENTIL [Concomitant]
  3. VITAMIN K TAB [Concomitant]
     Dosage: INJ
     Dates: start: 20110101
  4. HYDROCODONE [Concomitant]
  5. LOTREL [Concomitant]
     Dosage: 1DF=50/20 MG
  6. SPIRONOLACTONE [Concomitant]
  7. CLARINEX [Concomitant]
  8. JANUVIA [Concomitant]
     Indication: TYPE 2 DIABETES MELLITUS
     Dosage: 100MG IN AM ,50MG IN PM
  9. VENTOLIN HFA [Concomitant]
     Dosage: 2DF=2PUFFS
  10. KEFLEX [Concomitant]
  11. DEXAMETHASONE [Concomitant]
     Dosage: LINODERM PATCHES 5 MG
  12. METOPROLOL TARTRATE [Concomitant]
  13. COUMADIN [Suspect]
     Dosage: AS NEEDED
  14. DIPHENOXYLATE HCL + ATROPINE SULFATE [Concomitant]
  15. CLONAZEPAM [Concomitant]
  16. MORPHINE [Concomitant]
     Indication: PAIN IN EXTREMITY
     Dosage: AS NEEDED
  17. NOVOLOG [Concomitant]
  18. TOPROL-XL [Concomitant]
     Dosage: 100MG AM,50MG PM
  19. PLAVIX [Concomitant]
  20. HYDROCHLOROTHIAZIDE [Concomitant]
  21. CYCLOBENAZPRINE [Concomitant]
  22. CYMBALTA [Concomitant]
  23. LOMOTIL [Concomitant]
     Indication: DIARRHOEA
  24. LIDODERM [Concomitant]
  25. SYMBICORT [Concomitant]
     Dosage: 2DF=2PUFFS
  26. NITROGLYCERIN SPRAY [Concomitant]
     Indication: ANGINA PECTORIS
  27. LANTUS [Concomitant]
  28. NASACORT [Concomitant]
     Indication: EPISTAXIS

REACTIONS (10)
  - BRONCHITIS [None]
  - PRURITUS [None]
  - BLOOD POTASSIUM DECREASED [None]
  - CEREBROVASCULAR ACCIDENT [None]
  - GOITRE [None]
  - INTERNATIONAL NORMALISED RATIO FLUCTUATION [None]
  - TYPE 2 DIABETES MELLITUS [None]
  - FOLLICULITIS [None]
  - DIARRHOEA [None]
  - DECREASED APPETITE [None]
